FAERS Safety Report 5890499-6 (Version None)
Quarter: 2008Q3

REPORT INFORMATION
  Report Type: 
  Country: None (occurrence: None)
  Receive Date: 20080922
  Receipt Date: 20080917
  Transmission Date: 20090109
  Serious: No
  Sender: FDA-Public Use
  Company Number: JP-BAYER-200812036BYL

PATIENT
  Age: 74 Year
  Sex: Male
  Weight: 56 kg

DRUGS (7)
  1. NEXAVAR [Suspect]
     Indication: RENAL CELL CARCINOMA STAGE IV
     Dosage: TOTAL DAILY DOSE: 800 MG  UNIT DOSE: 200 MG
     Route: 048
     Dates: start: 20080811
  2. NORVASC [Concomitant]
     Indication: HYPERTENSION
     Dosage: TOTAL DAILY DOSE: 5 MG  UNIT DOSE: 5 MG
     Route: 048
     Dates: start: 20071106
  3. TIGASON [Concomitant]
     Indication: ONCOLOGIC COMPLICATION
     Dosage: AS USED: 20 MG  UNIT DOSE: 10 MG
     Route: 048
     Dates: start: 20070720
  4. AZUNOL [Concomitant]
     Indication: ONCOLOGIC COMPLICATION
     Route: 061
     Dates: start: 20071106
  5. SELBEX [Concomitant]
     Indication: ONCOLOGIC COMPLICATION
     Dosage: AS USED: 1.5 G
     Route: 048
     Dates: start: 20071106
  6. FAMOSTAGINE [Concomitant]
     Indication: ONCOLOGIC COMPLICATION
     Dosage: AS USED: 20 MG
     Route: 048
     Dates: start: 20071106
  7. PURSENNID [Concomitant]
     Indication: ONCOLOGIC COMPLICATION
     Dosage: AS USED: 24 MG
     Route: 048
     Dates: start: 20071106

REACTIONS (1)
  - HYPERTENSION [None]
